FAERS Safety Report 15297231 (Version 8)
Quarter: 2018Q4

REPORT INFORMATION
  Report Type: Report from Study
  Country: CN (occurrence: CN)
  Receive Date: 20180820
  Receipt Date: 20181212
  Transmission Date: 20190204
  Serious: Yes (Hospitalization)
  Sender: FDA-Public Use
  Company Number: CN-TAKEDA-2018TUS024926

PATIENT
  Age: 49 Year
  Sex: Male
  Weight: 63.5 kg

DRUGS (9)
  1. POLYETHYLENE GLYCOL COMPOUND [Concomitant]
     Indication: GASTROINTESTINAL DISORDER
     Dosage: UNK
     Route: 048
     Dates: start: 20180418, end: 20180418
  2. POLYETHYLENE GLYCOL COMPOUND [Concomitant]
     Dosage: UNK
     Route: 048
     Dates: start: 20180718, end: 20180718
  3. FERROUS SULFATE W/FOLIC ACID [Concomitant]
     Indication: NUTRITIONAL SUPPLEMENTATION
     Dosage: UNK
     Route: 048
     Dates: start: 20180720, end: 20180730
  4. SODIUM CHLORIDE. [Concomitant]
     Active Substance: SODIUM CHLORIDE
     Dosage: 100 ML, QD
     Route: 042
     Dates: start: 20180830, end: 20180911
  5. VEDOLIZUMAB [Suspect]
     Active Substance: VEDOLIZUMAB
     Indication: CROHN^S DISEASE
     Dosage: UNK
     Route: 042
     Dates: start: 20180508
  6. SODIUM CHLORIDE. [Concomitant]
     Active Substance: SODIUM CHLORIDE
     Indication: FLUID REPLACEMENT
     Dosage: 100 ML, BID
     Route: 042
     Dates: start: 20180811, end: 20180812
  7. ETIASA [Concomitant]
     Indication: CROHN^S DISEASE
     Dosage: 1 MG, QID
     Route: 048
     Dates: start: 20180413, end: 20180821
  8. CEFOPERAZONE SODIUM AND SULBACTAM SODIUM [Concomitant]
     Active Substance: CEFOPERAZONE SODIUM\SULBACTAM SODIUM
     Indication: INFLAMMATION
     Dosage: 2 G, BID
     Route: 042
     Dates: start: 20180811, end: 20180812
  9. POLYETHYLENE GLYCOL COMPOUND [Concomitant]
     Dosage: UNK, TID
     Route: 048
     Dates: start: 20180828, end: 20180828

REACTIONS (2)
  - Anal infection [Recovered/Resolved]
  - Crohn^s disease [Recovered/Resolved]

NARRATIVE: CASE EVENT DATE: 20180813
